FAERS Safety Report 12902236 (Version 1)
Quarter: 2016Q4

REPORT INFORMATION
  Report Type: Spontaneous
  Country: US (occurrence: US)
  Receive Date: 20161102
  Receipt Date: 20161102
  Transmission Date: 20170207
  Serious: Yes (Other)
  Sender: FDA-Public Use
  Company Number: US-PFIZER INC-2016507454

PATIENT
  Sex: Male

DRUGS (1)
  1. VIAGRA [Suspect]
     Active Substance: SILDENAFIL CITRATE
     Indication: ERECTILE DYSFUNCTION
     Dosage: 150 MG, 2X/DAY
     Route: 048
     Dates: start: 2016

REACTIONS (3)
  - Erection increased [Unknown]
  - Incorrect dose administered [Unknown]
  - Penile pain [Unknown]

NARRATIVE: CASE EVENT DATE: 2016
